FAERS Safety Report 11595803 (Version 1)
Quarter: 2015Q4

REPORT INFORMATION
  Report Type: Spontaneous
  Country: None (occurrence: None)
  Receive Date: 20151005
  Receipt Date: 20151005
  Transmission Date: 20160304
  Serious: Yes (Other)
  Sender: FDA-Public Use
  Company Number: None

PATIENT
  Age: 72 Year
  Sex: Female
  Weight: 72.58 kg

DRUGS (20)
  1. MIRTAZAPINE. [Concomitant]
     Active Substance: MIRTAZAPINE
  2. POLYETHYLENE GLYCOL [Concomitant]
     Active Substance: POLYETHYLENE GLYCOLS
  3. SIMVASTATIN. [Concomitant]
     Active Substance: SIMVASTATIN
  4. CITALOPRAM [Concomitant]
     Active Substance: CITALOPRAM HYDROBROMIDE
  5. DOCUSATE [Concomitant]
     Active Substance: DOCUSATE
  6. FLUTICASONE PROPIONATE. [Concomitant]
     Active Substance: FLUTICASONE PROPIONATE
  7. RANITIDINE [Concomitant]
     Active Substance: RANITIDINE\RANITIDINE HYDROCHLORIDE
  8. CLONAZEPAM. [Concomitant]
     Active Substance: CLONAZEPAM
  9. PREMARIN [Concomitant]
     Active Substance: ESTROGENS, CONJUGATED
  10. AMLODIPINE [Suspect]
     Active Substance: AMLODIPINE BESYLATE
     Indication: HYPERTENSION
     Route: 048
  11. ROPINIROLE. [Concomitant]
     Active Substance: ROPINIROLE
  12. LAMOTRIGINE. [Suspect]
     Active Substance: LAMOTRIGINE
     Indication: BIPOLAR DISORDER
     Route: 048
  13. LISINOPRIL. [Concomitant]
     Active Substance: LISINOPRIL
  14. VITAMIN D [Concomitant]
     Active Substance: CHOLECALCIFEROL
  15. ASPIRIN. [Concomitant]
     Active Substance: ASPIRIN
  16. CALCIUM [Concomitant]
     Active Substance: CALCIUM
  17. TRIAMCINOLONE ACETONIDE. [Concomitant]
     Active Substance: TRIAMCINOLONE ACETONIDE
  18. KETOCONAZOLE. [Concomitant]
     Active Substance: KETOCONAZOLE
  19. MELOXICAM. [Concomitant]
     Active Substance: MELOXICAM
  20. POTASSIUM CHLORIDE. [Concomitant]
     Active Substance: POTASSIUM CHLORIDE

REACTIONS (6)
  - Noninfective gingivitis [None]
  - Gingivitis [None]
  - Gingival pain [None]
  - Gingival hyperplasia [None]
  - Erythema [None]
  - Loose tooth [None]

NARRATIVE: CASE EVENT DATE: 20151001
